FAERS Safety Report 23019812 (Version 1)
Quarter: 2023Q4

REPORT INFORMATION
  Report Type: Spontaneous
  Country: US (occurrence: None)
  Receive Date: 20231002
  Receipt Date: 20231002
  Transmission Date: 20240109
  Serious: Yes (Disabling, Other)
  Sender: FDA-Public Use
  Company Number: None

PATIENT
  Age: 53 Year
  Sex: Female
  Weight: 64.8 kg

DRUGS (1)
  1. SUBOXONE [Suspect]
     Active Substance: BUPRENORPHINE HYDROCHLORIDE\NALOXONE HYDROCHLORIDE
     Indication: Pain

REACTIONS (11)
  - Tooth loss [None]
  - Edentulous [None]
  - Product prescribing issue [None]
  - Nervous system disorder [None]
  - Multiple fractures [None]
  - Somnolence [None]
  - Fall [None]
  - Oedema [None]
  - Insomnia [None]
  - Mental disorder [None]
  - Mental disorder [None]

NARRATIVE: CASE EVENT DATE: 20090203
